FAERS Safety Report 18858764 (Version 1)
Quarter: 2021Q1

REPORT INFORMATION
  Report Type: Spontaneous
  Country: US (occurrence: US)
  Receive Date: 20210206
  Receipt Date: 20210206
  Transmission Date: 20210420
  Serious: Yes (Disabling)
  Sender: FDA-Public Use
  Company Number: None

PATIENT
  Age: 9 Year
  Sex: Female
  Weight: 40.5 kg

DRUGS (1)
  1. MONTELUKAST [Suspect]
     Active Substance: MONTELUKAST SODIUM
     Indication: ASTHMA
     Dates: start: 20140101, end: 20201201

REACTIONS (5)
  - Affective disorder [None]
  - Agitation [None]
  - Anxiety [None]
  - Aggression [None]
  - Somnambulism [None]

NARRATIVE: CASE EVENT DATE: 20200301
